FAERS Safety Report 7248176-5 (Version None)
Quarter: 2011Q1

REPORT INFORMATION
  Report Type: 
  Country: None (occurrence: None)
  Receive Date: 20110127
  Receipt Date: 20110119
  Transmission Date: 20110831
  Serious: Yes (Disabling, Other)
  Sender: FDA-Public Use
  Company Number: BR-BAYER-2010-000192

PATIENT
  Sex: Female

DRUGS (2)
  1. INTERFERON BETA-1B [Suspect]
     Indication: MULTIPLE SCLEROSIS
     Dosage: 8 MIU, QOD
     Route: 058
     Dates: start: 20100601
  2. EUTHYROX [Concomitant]
     Indication: HYPERTHYROIDISM
     Dosage: UNK
     Route: 048
     Dates: start: 20010101

REACTIONS (12)
  - HEADACHE [None]
  - URINARY TRACT INFECTION [None]
  - INJECTION SITE ULCER [None]
  - HYPERHIDROSIS [None]
  - INJECTION SITE DISCOLOURATION [None]
  - MUSCULAR WEAKNESS [None]
  - PATHOGEN RESISTANCE [None]
  - FALL [None]
  - HAEMORRHAGE [None]
  - PHYSICAL DISABILITY [None]
  - SYNCOPE [None]
  - NASOPHARYNGITIS [None]
